FAERS Safety Report 9734820 (Version 2)
Quarter: 2013Q4

REPORT INFORMATION
  Report Type: Report from Study
  Country: BR (occurrence: BR)
  Receive Date: 20131206
  Receipt Date: 20131206
  Transmission Date: 20140711
  Serious: Yes (Hospitalization, Disabling)
  Sender: FDA-Public Use
  Company Number: BR-ROCHE-1060405

PATIENT
  Age: 53 Year
  Sex: Female
  Weight: 60 kg

DRUGS (5)
  1. RITUXIMAB [Suspect]
     Indication: RHEUMATOID ARTHRITIS
     Dosage: FIRST CYCLE
     Route: 042
     Dates: start: 20110317, end: 20130508
  2. RITUXIMAB [Suspect]
     Dosage: FIRST CYCLE
     Route: 042
     Dates: start: 20110401
  3. RITUXIMAB [Suspect]
     Dosage: SECOND CYCLE
     Route: 042
     Dates: start: 20111011
  4. SPIRIVA [Concomitant]
  5. ALINIA [Concomitant]

REACTIONS (4)
  - Uveitis [Not Recovered/Not Resolved]
  - Gastrointestinal infection [Unknown]
  - Gastrointestinal infection [Not Recovered/Not Resolved]
  - Aspiration [Unknown]
